FAERS Safety Report 6461862-X (Version None)
Quarter: 2009Q4

REPORT INFORMATION
  Report Type: 
  Country: None (occurrence: None)
  Receive Date: 20091130
  Receipt Date: 20091119
  Transmission Date: 20100525
  Serious: Yes (Hospitalization)
  Sender: FDA-Public Use
  Company Number: PHHY2009FR51090

PATIENT
  Age: 60 Year
  Sex: Female

DRUGS (1)
  1. RASILEZ [Suspect]
     Dosage: 150 MG, UNK
     Route: 048

REACTIONS (4)
  - AORTIC DISSECTION [None]
  - BREAST PAIN [None]
  - DYSPNOEA [None]
  - PAIN IN EXTREMITY [None]
